FAERS Safety Report 6721724-7 (Version None)
Quarter: 2010Q2

REPORT INFORMATION
  Report Type: 
  Country: None (occurrence: None)
  Receive Date: 20100512
  Receipt Date: 20100501
  Transmission Date: 20101027
  Serious: Yes (Other)
  Sender: FDA-Public Use
  Company Number: US-BAXTER-2010BH012414

PATIENT
  Age: 16 Year
  Sex: Male

DRUGS (7)
  1. IFOSFAMIDE [Suspect]
     Indication: BONE SARCOMA
     Dosage: DOSE UNIT:GRAMS PER METERS SQUARED
     Route: 065
  2. IFOSFAMIDE [Suspect]
     Dosage: DOSE UNIT:GRAMS PER METERS SQUARED
     Route: 065
  3. MESNA [Concomitant]
     Indication: DRUG USE FOR UNKNOWN INDICATION
     Route: 065
  4. DOLASETRON [Concomitant]
     Indication: DRUG USE FOR UNKNOWN INDICATION
     Route: 065
  5. DEXAMETHASONE [Concomitant]
     Indication: DRUG USE FOR UNKNOWN INDICATION
     Route: 065
  6. LORAZEPAM [Concomitant]
     Indication: DRUG USE FOR UNKNOWN INDICATION
     Route: 065
  7. DIPHENHYDRAMINE [Concomitant]
     Indication: DRUG USE FOR UNKNOWN INDICATION
     Route: 065

REACTIONS (2)
  - ENCEPHALOPATHY [None]
  - MOVEMENT DISORDER [None]
